FAERS Safety Report 8329603-9 (Version None)
Quarter: 2012Q2

REPORT INFORMATION
  Report Type: 
  Country: None (occurrence: None)
  Receive Date: 20120502
  Receipt Date: 20120430
  Transmission Date: 20120825
  Serious: Yes (Death, Hospitalization, Other)
  Sender: FDA-Public Use
  Company Number: PHHY2012EC037026

PATIENT
  Sex: Female

DRUGS (2)
  1. DIOVAN HCT [Suspect]
     Indication: HYPERTENSION
     Dosage: 1 DF(160 MG VAL/12.5 MG AMLO) DAILY
     Route: 048
     Dates: start: 20080101, end: 20120201
  2. LEVOTHYROXINE SODIUM [Concomitant]
     Dosage: 1 DF, UNK

REACTIONS (5)
  - HERPES ZOSTER [None]
  - PLEURAL EFFUSION [None]
  - PNEUMONIA [None]
  - OEDEMA PERIPHERAL [None]
  - CARDIO-RESPIRATORY ARREST [None]
